FAERS Safety Report 25463084 (Version 1)
Quarter: 2025Q2

REPORT INFORMATION
  Report Type: Report from Study
  Country: CA (occurrence: CA)
  Receive Date: 20250620
  Receipt Date: 20250620
  Transmission Date: 20250716
  Serious: Yes (Other)
  Sender: TAKEDA
  Company Number: CA-TAKEDA-2025TUS056044

PATIENT
  Sex: Female

DRUGS (8)
  1. VEDOLIZUMAB [Suspect]
     Active Substance: VEDOLIZUMAB
     Indication: Colitis ulcerative
  2. VEDOLIZUMAB [Suspect]
     Active Substance: VEDOLIZUMAB
     Dosage: 300 MILLIGRAM, Q4WEEKS
     Dates: start: 20240610
  3. PANTOPRAZOLE SODIUM [Suspect]
     Active Substance: PANTOPRAZOLE SODIUM
     Indication: Product used for unknown indication
  4. PERINDOPRIL [Concomitant]
     Active Substance: PERINDOPRIL
  5. METHOTREXATE [Concomitant]
     Active Substance: METHOTREXATE
  6. HYDROXYCHLOROQUINE [Concomitant]
     Active Substance: HYDROXYCHLOROQUINE
  7. FOLIC ACID [Concomitant]
     Active Substance: FOLIC ACID
  8. PENTASA [Concomitant]
     Active Substance: MESALAMINE

REACTIONS (1)
  - Rheumatoid arthritis [Unknown]
